FAERS Safety Report 6121203-4 (Version None)
Quarter: 2009Q1

REPORT INFORMATION
  Report Type: 
  Country: None (occurrence: None)
  Receive Date: 20090312
  Receipt Date: 20090312
  Transmission Date: 20090719
  Serious: No
  Sender: FDA-Public Use
  Company Number: None

PATIENT
  Sex: Female
  Weight: 68.18 kg

DRUGS (7)
  1. CALCIUM + D (500 ELEM.CA) (CALCIUM CARBONATE 1250 MG (500MG ELEM CAV V [Suspect]
     Dosage: 500MG-200 TABLET 1 TAB TID ORAL
     Route: 048
     Dates: start: 20081204, end: 20090310
  2. DIFLUCAN [Concomitant]
  3. ERGOCALCIFEROL [Concomitant]
  4. LORAZEPAM [Concomitant]
  5. MOTRIN [Concomitant]
  6. SALINE NASAL SPRAY (SODIUM CHLORIDE 0.65%) [Concomitant]
  7. TYLENOL # 3 (ACETAMINOPHEN W/CODEINE 30MG) [Concomitant]

REACTIONS (1)
  - CONSTIPATION [None]
